FAERS Safety Report 6649963-4 (Version None)
Quarter: 2010Q1

REPORT INFORMATION
  Report Type: 
  Country: None (occurrence: None)
  Receive Date: 20100324
  Receipt Date: 20100324
  Transmission Date: 20100710
  Serious: Yes (Other)
  Sender: FDA-Public Use
  Company Number: None

PATIENT
  Sex: Female
  Weight: 74.8 kg

DRUGS (10)
  1. ALBUMIN (HUMAN) [Suspect]
     Dosage: 1.875G/KG
     Dates: start: 20100303
  2. ALBUMIN (HUMAN) [Suspect]
     Dosage: 1.875G/K
     Dates: start: 20100304
  3. MANNITOL [Concomitant]
  4. CEFEPIME [Concomitant]
  5. ACETAMINOPHEN [Concomitant]
  6. VANCOMYOCIN [Concomitant]
  7. PREDNISONE [Concomitant]
  8. MIRALAX [Concomitant]
  9. NIMODIPINE [Concomitant]
  10. DOCUSATECHLOROHEXIDINE [Concomitant]

REACTIONS (7)
  - ACUTE RESPIRATORY DISTRESS SYNDROME [None]
  - CARDIAC FAILURE CONGESTIVE [None]
  - FLUID OVERLOAD [None]
  - PNEUMONIA ASPIRATION [None]
  - PULMONARY OEDEMA [None]
  - SEPSIS [None]
  - TRANSFUSION-RELATED ACUTE LUNG INJURY [None]
